FAERS Safety Report 4373353-0 (Version None)
Quarter: 2004Q2

REPORT INFORMATION
  Report Type: 
  Country: None (occurrence: None)
  Receive Date: 20040603
  Receipt Date: 20040526
  Transmission Date: 20050107
  Serious: Yes (Hospitalization)
  Sender: FDA-Public Use
  Company Number: 2004UW11084

PATIENT
  Age: 52 Year
  Sex: Male

DRUGS (1)
  1. IRESSA [Suspect]
     Dosage: NI

REACTIONS (2)
  - CONDITION AGGRAVATED [None]
  - PLEURAL EFFUSION [None]
